FAERS Safety Report 22267890 (Version 2)
Quarter: 2023Q2

REPORT INFORMATION
  Report Type: Report from Study
  Country: IL (occurrence: IL)
  Receive Date: 20230430
  Receipt Date: 20230513
  Transmission Date: 20230721
  Serious: Yes (Hospitalization)
  Sender: FDA-Public Use
  Company Number: IL-002147023-NVSC2023IL093565

PATIENT
  Age: 26 Year
  Sex: Female

DRUGS (1)
  1. MAYZENT [Suspect]
     Active Substance: SIPONIMOD
     Indication: Relapsing-remitting multiple sclerosis
     Dosage: 4 DOSAGE FORM, QD
     Route: 048
     Dates: start: 20221213

REACTIONS (2)
  - Swelling [Unknown]
  - Dysphagia [Unknown]
